APPROVED DRUG PRODUCT: CALCITRIOL
Active Ingredient: CALCITRIOL
Strength: 0.001MG/ML
Dosage Form/Route: INJECTABLE;INJECTION
Application: A075816 | Product #001
Applicant: HOSPIRA INC
Approved: Jan 16, 2004 | RLD: No | RS: No | Type: DISCN